FAERS Safety Report 10563945 (Version 3)
Quarter: 2015Q1

REPORT INFORMATION
  Report Type: Spontaneous
  Country: DE (occurrence: DE)
  Receive Date: 20141104
  Receipt Date: 20150205
  Transmission Date: 20150720
  Serious: Yes (Other)
  Sender: FDA-Public Use
  Company Number: DE-ASTELLAS-2014EU013737

PATIENT
  Sex: Male

DRUGS (3)
  1. BETMIGA [Suspect]
     Active Substance: MIRABEGRON
     Indication: BENIGN PROSTATIC HYPERPLASIA
  2. BETMIGA [Suspect]
     Active Substance: MIRABEGRON
     Indication: URGE INCONTINENCE
     Dosage: UNK, ONCE DAILY
     Route: 048
     Dates: start: 20141011, end: 20141012
  3. CORINFAR [Concomitant]
     Indication: HYPERTENSION
     Dosage: UNK UNK, ONCE DAILY
     Route: 048
     Dates: start: 1994

REACTIONS (2)
  - Urinary retention [Recovered/Resolved]
  - Genital pain [Recovered/Resolved]

NARRATIVE: CASE EVENT DATE: 20141011
